FAERS Safety Report 4357826-2 (Version None)
Quarter: 2004Q2

REPORT INFORMATION
  Report Type: 
  Country: None (occurrence: None)
  Receive Date: 20040512
  Receipt Date: 20040430
  Transmission Date: 20050107
  Serious: Yes (Other)
  Sender: FDA-Public Use
  Company Number: HQWYE676403MAY04

PATIENT
  Age: 80 Year
  Sex: Female
  Weight: 59.02 kg

DRUGS (3)
  1. EFFEXOR XR [Suspect]
     Indication: DEPRESSION
     Dosage: 150 MG 1X PER 1 DAY, ORAL
     Route: 048
     Dates: start: 20020101
  2. WELLBUTRIN [Suspect]
     Indication: DEPRESSION
     Dosage: HER DOSE ^HAD DOUBLED^
  3. XALATAN [Concomitant]

REACTIONS (4)
  - BLINDNESS UNILATERAL [None]
  - CONDITION AGGRAVATED [None]
  - CORNEAL ABRASION [None]
  - GLAUCOMA [None]
